FAERS Safety Report 14957326 (Version 3)
Quarter: 2018Q2

REPORT INFORMATION
  Report Type: Spontaneous
  Country: US (occurrence: US)
  Receive Date: 20180531
  Receipt Date: 20180613
  Transmission Date: 20180711
  Serious: Yes (Other)
  Sender: FDA-Public Use
  Company Number: US-LEO PHARMA-309201

PATIENT
  Age: 83 Year
  Sex: Female

DRUGS (1)
  1. PICATO [Suspect]
     Active Substance: INGENOL MEBUTATE
     Indication: ACTINIC KERATOSIS
     Dosage: TWO DAY PICATO FOR THREE DAYS WAS PRESCRIBED BUT JUST APPLIED ONE DOSE.
     Route: 061
     Dates: start: 20180528, end: 20180528

REACTIONS (9)
  - Sleep disorder [Recovered/Resolved]
  - Eye irritation [Recovered/Resolved]
  - Hypersensitivity [Recovered/Resolved]
  - Accidental exposure to product [Recovered/Resolved]
  - Application site erythema [Recovered/Resolved]
  - Intentional product misuse [Unknown]
  - Application site swelling [Recovered/Resolved]
  - Therapy cessation [Unknown]
  - Application site pain [Recovered/Resolved]

NARRATIVE: CASE EVENT DATE: 20180528
